FAERS Safety Report 5532975-1 (Version None)
Quarter: 2007Q4

REPORT INFORMATION
  Report Type: 
  Country: None (occurrence: None)
  Receive Date: 20071129
  Receipt Date: 20071129
  Transmission Date: 20080405
  Serious: Yes (Other)
  Sender: FDA-Public Use
  Company Number: None

PATIENT
  Age: 16 Year
  Sex: Female
  Weight: 66.7 kg

DRUGS (1)
  1. CLARAVIS [Suspect]
     Indication: ACNE
     Dosage: 40 MG TWICE DAILY PO
     Route: 048
     Dates: start: 20071022, end: 20071024

REACTIONS (5)
  - ABDOMINAL PAIN [None]
  - ARTHRALGIA [None]
  - CHILLS [None]
  - DIZZINESS [None]
  - HEADACHE [None]
